FAERS Safety Report 21950642 (Version 1)
Quarter: 2023Q1

REPORT INFORMATION
  Report Type: Spontaneous
  Country: US (occurrence: None)
  Receive Date: 20230203
  Receipt Date: 20230203
  Transmission Date: 20230417
  Serious: Yes (Hospitalization)
  Sender: FDA-Public Use
  Company Number: None

PATIENT
  Age: 31 Year
  Sex: Female
  Weight: 117 kg

DRUGS (8)
  1. OZEMPIC [Suspect]
     Active Substance: SEMAGLUTIDE
     Indication: Obesity
     Dosage: OTHER QUANTITY : 1 INJECTION(S);?OTHER FREQUENCY : 1X WEEKLY;?OTHER ROUTE : SUBCUTANEOUS INJECTION;?
     Route: 050
     Dates: start: 20220803, end: 20221221
  2. compliant with CPAP therapy for sleep apnea [Concomitant]
  3. Lisinopril 20 mg 1x daily [Concomitant]
  4. Pristiq 100 mg 1x daily [Concomitant]
  5. Metformin 500 mg 1x daily [Concomitant]
  6. Vyvanse 30 mg 1x daily [Concomitant]
  7. Mirena IUD (initially placed 03/2015, replaced 10/2020) [Concomitant]
  8. Claritin 10 mg 1x daily [Concomitant]

REACTIONS (1)
  - Cholelithiasis [None]

NARRATIVE: CASE EVENT DATE: 20230116
